FAERS Safety Report 23060012 (Version 1)
Quarter: 2023Q4

REPORT INFORMATION
  Report Type: Spontaneous
  Country: GB (occurrence: GB)
  Receive Date: 20231012
  Receipt Date: 20231012
  Transmission Date: 20240110
  Serious: Yes (Other)
  Sender: FDA-Public Use
  Company Number: GB-BAXTER-2023BAX031722

PATIENT
  Age: 37 Year
  Sex: Female

DRUGS (10)
  1. DOXORUBICIN [Suspect]
     Active Substance: DOXORUBICIN
     Indication: Chemotherapy
     Dosage: UNK, FIRST CYCLE OF CHEMOTHERAPY
     Route: 065
  2. DOXORUBICIN [Suspect]
     Active Substance: DOXORUBICIN
     Dosage: UNK, 25% DOSE REDUCTION (STARTED RECHALLENGE)
     Route: 065
     Dates: start: 20230123
  3. DOXORUBICIN [Suspect]
     Active Substance: DOXORUBICIN
     Dosage: UNK, 25% DOSE REDUCTION (STARTED RECHALLENGE)
     Route: 065
     Dates: start: 20230202
  4. DOXORUBICIN [Suspect]
     Active Substance: DOXORUBICIN
     Dosage: UNK, CYCLE 2
     Route: 065
     Dates: start: 20230224
  5. IFOSFAMIDE [Suspect]
     Active Substance: IFOSFAMIDE
     Indication: Chemotherapy
     Dosage: UNK, FIRST CYCLE OF CHEMOTHERAPY
     Route: 065
  6. IFOSFAMIDE [Suspect]
     Active Substance: IFOSFAMIDE
     Dosage: UNK , SIXTH CYCLE OF CHEMOTHERAPY, DOSE REDUCED
     Route: 065
     Dates: start: 20210119
  7. IFOSFAMIDE [Suspect]
     Active Substance: IFOSFAMIDE
     Dosage: UNK, 2 DAY REDUCED VOLUME (STARTED RECHALLENGE)
     Route: 065
     Dates: start: 20230123
  8. IFOSFAMIDE [Suspect]
     Active Substance: IFOSFAMIDE
     Dosage: UNK, 2 DAY REDUCED VOLUME (STARTED RECHALLENGE)
     Route: 065
     Dates: start: 20230202
  9. IFOSFAMIDE [Suspect]
     Active Substance: IFOSFAMIDE
     Dosage: UNK, CYCLE 2
     Route: 065
     Dates: start: 20230224
  10. IFOSFAMIDE [Suspect]
     Active Substance: IFOSFAMIDE
     Dosage: UNK, 25 % DOSE REDUCTION
     Route: 065
     Dates: start: 20230420

REACTIONS (4)
  - Pulmonary oedema [Unknown]
  - Neutropenia [Unknown]
  - Neutropenic sepsis [Unknown]
  - Hypervolaemia [Unknown]

NARRATIVE: CASE EVENT DATE: 20230401
